FAERS Safety Report 8000350-6 (Version None)
Quarter: 2011Q4

REPORT INFORMATION
  Report Type: 
  Country: None (occurrence: None)
  Receive Date: 20111222
  Receipt Date: 20111213
  Transmission Date: 20120403
  Serious: Yes (Hospitalization)
  Sender: FDA-Public Use
  Company Number: US-BAYER-2011-075138

PATIENT
  Age: 40 Year
  Sex: Female

DRUGS (6)
  1. BISMUTH SUBSALICYLATE [Concomitant]
  2. YAZ [Suspect]
     Indication: PREMENSTRUAL SYNDROME
     Dosage: UNK
     Route: 048
     Dates: start: 20070101, end: 20090101
  3. KADIPEX [Concomitant]
  4. DARVOCET [Concomitant]
  5. IBUPROFEN (ADVIL) [Concomitant]
  6. CALCIUM CARBONATE [Concomitant]

REACTIONS (4)
  - CHOLECYSTITIS CHRONIC [None]
  - GALLBLADDER INJURY [None]
  - INJURY [None]
  - PAIN [None]
